FAERS Safety Report 9520087 (Version 2)
Quarter: 2013Q3

REPORT INFORMATION
  Report Type: Report from Study
  Country: IN (occurrence: IN)
  Receive Date: 20130912
  Receipt Date: 20130912
  Transmission Date: 20140515
  Serious: Yes (Death)
  Sender: FDA-Public Use
  Company Number: PHHY2012IN020976

PATIENT
  Age: 58 Year
  Sex: Male

DRUGS (3)
  1. GLIVEC [Suspect]
     Indication: CHRONIC MYELOID LEUKAEMIA
     Dosage: 400 MG,
  2. GLIVEC [Suspect]
     Dosage: 600 MG,
  3. GLIVEC [Suspect]
     Dosage: 400 MG

REACTIONS (2)
  - Death [Fatal]
  - Therapeutic response decreased [Unknown]
